FAERS Safety Report 4612341-3 (Version None)
Quarter: 2005Q1

REPORT INFORMATION
  Report Type: 
  Country: None (occurrence: None)
  Receive Date: 20050316
  Receipt Date: 20050303
  Transmission Date: 20050727
  Serious: Yes (Other)
  Sender: FDA-Public Use
  Company Number: HQWYE672603MAY04

PATIENT
  Age: 51 Year
  Sex: Female

DRUGS (4)
  1. PREMARIN [Suspect]
     Indication: HORMONE REPLACEMENT THERAPY
     Dosage: SEE IMAGE
     Dates: start: 19760101, end: 19790101
  2. PREMARIN [Suspect]
     Indication: HORMONE REPLACEMENT THERAPY
     Dosage: SEE IMAGE
     Dates: start: 19800101, end: 19970101
  3. ESTRADIOL [Suspect]
     Dosage: ORAL
     Route: 048
     Dates: start: 20010101, end: 20020101
  4. PREMPRO [Suspect]
     Dosage: 0.625MG/2.5MG, ORAL
     Route: 048
     Dates: start: 19970101, end: 20010501

REACTIONS (4)
  - ANXIETY [None]
  - DIABETES MELLITUS [None]
  - PHARMACEUTICAL PRODUCT COMPLAINT [None]
  - TRANSIENT ISCHAEMIC ATTACK [None]
